FAERS Safety Report 13820874 (Version 1)
Quarter: 2017Q3

REPORT INFORMATION
  Report Type: Spontaneous
  Country: US (occurrence: US)
  Receive Date: 20170801
  Receipt Date: 20170801
  Transmission Date: 20171127
  Serious: No
  Sender: FDA-Public Use
  Company Number: US-TEVA-778400USA

PATIENT

DRUGS (1)
  1. LORAZEPAM. [Suspect]
     Active Substance: LORAZEPAM
     Dosage: 1 MILLIGRAM DAILY;
     Route: 065
     Dates: start: 20170212

REACTIONS (7)
  - Depression [Unknown]
  - Insomnia [Unknown]
  - Confusional state [Unknown]
  - Tinnitus [Unknown]
  - Eye pain [Unknown]
  - Product counterfeit [Unknown]
  - Product substitution issue [Unknown]
